FAERS Safety Report 21187508 (Version 1)
Quarter: 2022Q3

REPORT INFORMATION
  Report Type: Spontaneous
  Country: US (occurrence: US)
  Receive Date: 20220808
  Receipt Date: 20220808
  Transmission Date: 20221027
  Serious: No
  Sender: FDA-Public Use
  Company Number: ae015US22

PATIENT
  Sex: Female

DRUGS (5)
  1. ASCLERA [Suspect]
     Active Substance: POLIDOCANOL
     Indication: Sclerotherapy
  2. ASCLERA [Suspect]
     Active Substance: POLIDOCANOL
     Indication: Sclerotherapy
  3. RINVOQ [Concomitant]
     Active Substance: UPADACITINIB
     Indication: Product used for unknown indication
  4. LEFLUNOMIDE [Concomitant]
     Active Substance: LEFLUNOMIDE
     Indication: Product used for unknown indication
  5. ESTRADIOL [Concomitant]
     Active Substance: ESTRADIOL
     Indication: Product used for unknown indication

REACTIONS (2)
  - Arthralgia [Unknown]
  - Joint swelling [Unknown]
